FAERS Safety Report 7410354-X (Version None)
Quarter: 2011Q2

REPORT INFORMATION
  Report Type: 
  Country: None (occurrence: None)
  Receive Date: 20110412
  Receipt Date: 20110329
  Transmission Date: 20111010
  Serious: Yes (Hospitalization, Other)
  Sender: FDA-Public Use
  Company Number: BR-GENENTECH-283999

PATIENT
  Sex: Female
  Weight: 63 kg

DRUGS (15)
  1. FELDENE [Concomitant]
     Indication: RHEUMATOID ARTHRITIS
     Dosage: 1 TABLET, QD
     Route: 048
  2. FOLINA [Concomitant]
     Indication: PRODUCT USED FOR UNKNOWN INDICATION
     Route: 048
  3. METHOTREXATE [Concomitant]
     Indication: PRODUCT USED FOR UNKNOWN INDICATION
  4. DORFLEX [Concomitant]
     Indication: ANALGESIC THERAPY
     Dosage: 3 TABLET, QD
     Route: 048
  5. MABTHERA [Suspect]
     Indication: RHEUMATOID ARTHRITIS
     Dosage: 100 MG/ML, Q14D
     Route: 042
     Dates: start: 20080815, end: 20080830
  6. MAREVAN [Concomitant]
     Indication: PRODUCT USED FOR UNKNOWN INDICATION
  7. MABTHERA [Suspect]
     Dosage: UNK
     Route: 042
     Dates: start: 20090101, end: 20090101
  8. TOCILIZUMAB [Suspect]
     Indication: RHEUMATOID ARTHRITIS
     Dosage: UNK MG, UNK
     Route: 042
     Dates: start: 20091001
  9. TOCILIZUMAB [Suspect]
     Dosage: 530 MG, UNK
     Route: 042
     Dates: start: 20091101
  10. TOCILIZUMAB [Suspect]
     Dosage: UNK
     Route: 042
     Dates: start: 20100901
  11. TOCILIZUMAB [Suspect]
     Dosage: UNK
     Route: 042
     Dates: start: 20100301
  12. PRELONE [Concomitant]
     Indication: RHEUMATOID ARTHRITIS
  13. TOCILIZUMAB [Suspect]
     Dosage: UNK
     Route: 042
     Dates: start: 20110304
  14. TOCILIZUMAB [Suspect]
     Dosage: UNK
     Route: 042
     Dates: start: 20091201
  15. POVIDONE IODINE [Concomitant]
     Indication: PRODUCT USED FOR UNKNOWN INDICATION

REACTIONS (15)
  - PALLOR [None]
  - RHEUMATOID ARTHRITIS [None]
  - URTICARIA [None]
  - PAIN IN EXTREMITY [None]
  - PAIN [None]
  - THERAPEUTIC RESPONSE DECREASED [None]
  - MALAISE [None]
  - SWELLING [None]
  - PRURITUS [None]
  - OEDEMA PERIPHERAL [None]
  - SKIN ATROPHY [None]
  - OCULAR HYPERAEMIA [None]
  - THROMBOSIS [None]
  - JOINT WARMTH [None]
  - HYPERTENSION [None]
